FAERS Safety Report 12399562 (Version 1)
Quarter: 2016Q2

REPORT INFORMATION
  Report Type: Not Available
  Country: None (occurrence: US)
  Receive Date: 20160524
  Receipt Date: 20160524
  Transmission Date: 20160815
  Serious: No
  Sender: FDA-Public Use
  Company Number: US-AKORN-30431

PATIENT
  Sex: Male

DRUGS (1)
  1. TOBRAMYCIN INHALATION SOLUTION PAK [Suspect]
     Active Substance: TOBRAMYCIN

REACTIONS (2)
  - Dyspnoea [Unknown]
  - Product quality issue [None]
